FAERS Safety Report 7098627-4 (Version None)
Quarter: 2010Q4

REPORT INFORMATION
  Report Type: 
  Country: None (occurrence: None)
  Receive Date: 20101112
  Receipt Date: 20101108
  Transmission Date: 20110411
  Serious: Yes (Other)
  Sender: FDA-Public Use
  Company Number: JP-PFIZER INC-2010141743

PATIENT
  Age: 74 Year
  Sex: Male

DRUGS (3)
  1. SELARA [Suspect]
     Indication: BLOOD ALDOSTERONE INCREASED
     Dosage: UNK
     Route: 048
     Dates: start: 20101020, end: 20101103
  2. BUP-4 [Concomitant]
     Route: 048
  3. URIEF [Concomitant]
     Route: 048

REACTIONS (1)
  - INTERSTITIAL LUNG DISEASE [None]
